FAERS Safety Report 9548779 (Version 1)
Quarter: 2013Q2

REPORT INFORMATION
  Report Type: Spontaneous
  Country: US (occurrence: None)
  Receive Date: 20130627
  Receipt Date: 20130627
  Transmission Date: 20140414
  Serious: Yes (Other)
  Sender: FDA-Public Use
  Company Number: 1000044341

PATIENT
  Age: 86 Year
  Sex: Female

DRUGS (6)
  1. LINZESS (LINACLOTIDE) (145 MICROGRAM, CAPSULES) [Suspect]
     Indication: CONSTIPATION
     Dosage: 145 MCG (145 MCG, 1 IN 1 D), ORAL
     Route: 048
     Dates: start: 20130403
  2. METAMUCIL (PSYLLIUM) (PSYLLIUM) [Concomitant]
  3. PRUNE JUICE (PRUNE JUICE) (PRUNE JUICE) [Concomitant]
  4. COUMADIN [Suspect]
  5. BETAPACE [Concomitant]
  6. NORVASC [Concomitant]

REACTIONS (2)
  - Defaecation urgency [None]
  - Faeces hard [None]
